FAERS Safety Report 8427404-4 (Version None)
Quarter: 2012Q2

REPORT INFORMATION
  Report Type: 
  Country: None (occurrence: None)
  Receive Date: 20120323
  Receipt Date: 20110222
  Transmission Date: 20120825
  Serious: Yes (Hospitalization)
  Sender: FDA-Public Use
  Company Number: 163-21880-11021817

PATIENT
  Age: 63 Year
  Sex: Female

DRUGS (5)
  1. ASPIRIN [Concomitant]
  2. MULTIVITAMIN [Concomitant]
  3. REVLIMID [Suspect]
     Indication: MYELODYSPLASTIC SYNDROME
     Dosage: 10 MG, 1 IN 1 D, PO
     Route: 048
     Dates: start: 20101204, end: 20110204
  4. NAPROXEN (ALEVE) [Concomitant]
  5. TYLENOL NO. 3 (PANADEINE CO) [Concomitant]

REACTIONS (1)
  - COLITIS ISCHAEMIC [None]
